FAERS Safety Report 15136288 (Version 1)
Quarter: 2018Q3

REPORT INFORMATION
  Report Type: Spontaneous
  Country: US (occurrence: US)
  Receive Date: 20180712
  Receipt Date: 20180712
  Transmission Date: 20181010
  Serious: Yes (Other)
  Sender: FDA-Public Use
  Company Number: US-SA-2018SA164742

PATIENT
  Age: 53 Year
  Sex: Female
  Weight: 81 kg

DRUGS (2)
  1. TAXOTERE [Suspect]
     Active Substance: DOCETAXEL
     Indication: BREAST CANCER
     Dosage: 3 MG, Q3W
     Route: 042
     Dates: start: 2011, end: 2011
  2. TAXOTERE [Suspect]
     Active Substance: DOCETAXEL
     Dosage: 3 MG, Q3W
     Route: 042
     Dates: start: 2013, end: 2013

REACTIONS (2)
  - Psychological trauma [Unknown]
  - Alopecia [Not Recovered/Not Resolved]

NARRATIVE: CASE EVENT DATE: 2012
